FAERS Safety Report 4756666-X (Version None)
Quarter: 2005Q3

REPORT INFORMATION
  Report Type: 
  Country: None (occurrence: None)
  Receive Date: 20050830
  Receipt Date: 20050818
  Transmission Date: 20060218
  Serious: Yes (Congenital Anomaly)
  Sender: FDA-Public Use
  Company Number: US-GLAXOSMITHKLINE-A0572033A

PATIENT
  Sex: Male
  Weight: 2.7 kg

DRUGS (3)
  1. COMBIVIR [Suspect]
     Indication: HIV INFECTION
     Dosage: 1TAB TWICE PER DAY
     Dates: start: 20050211
  2. RETROVIR [Suspect]
     Indication: HIV INFECTION
     Dosage: 381.85MG PER DAY
     Dates: start: 20050723, end: 20050724
  3. VIRACEPT [Concomitant]
     Indication: HIV INFECTION
     Dosage: 2500MG PER DAY
     Dates: start: 20050211

REACTIONS (2)
  - CONGENITAL MEGACOLON [None]
  - DRUG EXPOSURE DURING PREGNANCY [None]
